FAERS Safety Report 6218673-X (Version None)
Quarter: 2009Q2

REPORT INFORMATION
  Report Type: 
  Country: None (occurrence: None)
  Receive Date: 20090608
  Receipt Date: 20090527
  Transmission Date: 20091009
  Serious: Yes (Death)
  Sender: FDA-Public Use
  Company Number: US-PFIZER INC-2009200447

PATIENT
  Age: 30 Year
  Sex: Female

DRUGS (1)
  1. GEODON [Suspect]
     Dosage: 40 MG, UNK
     Dates: start: 20081001

REACTIONS (1)
  - MYOCARDIAL INFARCTION [None]
